FAERS Safety Report 8488993-7 (Version None)
Quarter: 2012Q3

REPORT INFORMATION
  Report Type: 
  Country: None (occurrence: None)
  Receive Date: 20120705
  Receipt Date: 20120629
  Transmission Date: 20120928
  Serious: Yes (Hospitalization, Other)
  Sender: FDA-Public Use
  Company Number: US-PFIZER INC-2011275510

PATIENT
  Sex: Female
  Weight: 126 kg

DRUGS (2)
  1. DEPO-PROVERA [Suspect]
     Dosage: 1 ML, UNK
     Route: 030
     Dates: start: 20040701
  2. DEPO-PROVERA [Suspect]
     Indication: CONTRACEPTION
     Dosage: 150 MG/ML
     Route: 030
     Dates: start: 20030325

REACTIONS (36)
  - WEIGHT FLUCTUATION [None]
  - BONE DENSITY DECREASED [None]
  - ALOPECIA [None]
  - PELVIC ADHESIONS [None]
  - ABDOMINAL PAIN LOWER [None]
  - BURNOUT SYNDROME [None]
  - EMOTIONAL DISORDER [None]
  - HAEMORRHAGE [None]
  - THROMBOSIS [None]
  - DISTURBANCE IN ATTENTION [None]
  - FATIGUE [None]
  - OEDEMA PERIPHERAL [None]
  - DYSARTHRIA [None]
  - GAIT DISTURBANCE [None]
  - VISUAL IMPAIRMENT [None]
  - HORMONE LEVEL ABNORMAL [None]
  - INJECTION SITE RASH [None]
  - BONE PAIN [None]
  - JOINT STIFFNESS [None]
  - ABDOMINAL PAIN UPPER [None]
  - MENSTRUATION IRREGULAR [None]
  - OSTEOGENESIS IMPERFECTA [None]
  - MEMORY IMPAIRMENT [None]
  - DEPRESSION [None]
  - HYPERTENSION [None]
  - ANXIETY [None]
  - MENORRHAGIA [None]
  - NIGHT SWEATS [None]
  - DYSPNOEA [None]
  - INJECTION SITE INFLAMMATION [None]
  - HOT FLUSH [None]
  - JAUNDICE [None]
  - CONVULSION [None]
  - HEADACHE [None]
  - MENOPAUSE [None]
  - ASTHENIA [None]
